FAERS Safety Report 11302431 (Version 1)
Quarter: 2015Q3

REPORT INFORMATION
  Report Type: Spontaneous
  Country: GB (occurrence: GB)
  Receive Date: 20150723
  Receipt Date: 20150723
  Transmission Date: 20151125
  Serious: Yes (Hospitalization, Other)
  Sender: FDA-Public Use
  Company Number: GB-FRESENIUS KABI-FK201503506

PATIENT
  Age: 67 Year
  Sex: Male
  Weight: 72.5 kg

DRUGS (19)
  1. AMITRIPTYLINE [Concomitant]
     Active Substance: AMITRIPTYLINE
  2. ISOSORBIDE. [Concomitant]
     Active Substance: ISOSORBIDE
  3. NICOTINE. [Concomitant]
     Active Substance: NICOTINE
  4. TAMSULOSIN HYDROCHLORIDE. [Concomitant]
     Active Substance: TAMSULOSIN HYDROCHLORIDE
  5. ATORVASTATIN [Concomitant]
     Active Substance: ATORVASTATIN
  6. ZOPICLONE [Concomitant]
     Active Substance: ZOPICLONE
  7. ASPIRIN. [Concomitant]
     Active Substance: ASPIRIN
  8. CREON [Concomitant]
     Active Substance: PANCRELIPASE AMYLASE\PANCRELIPASE LIPASE\PANCRELIPASE PROTEASE
  9. PARACETAMOL [Concomitant]
     Active Substance: ACETAMINOPHEN
  10. SALBUTAMOL [Concomitant]
     Active Substance: ALBUTEROL
  11. LORAZEPAM. [Concomitant]
     Active Substance: LORAZEPAM
  12. SERTRALINE [Concomitant]
     Active Substance: SERTRALINE HYDROCHLORIDE
  13. ANORO ELLIPTA [Concomitant]
     Active Substance: UMECLIDINIUM BROMIDE\VILANTEROL TRIFENATATE
  14. LANSOPRAZOLE. [Concomitant]
     Active Substance: LANSOPRAZOLE
  15. OXYCODONE [Concomitant]
     Active Substance: OXYCODONE
  16. LEVOFLOXACIN (MANUFACTURER UNKNOWN) [Suspect]
     Active Substance: LEVOFLOXACIN
     Indication: INFECTIOUS PLEURAL EFFUSION
     Route: 042
     Dates: start: 20150531, end: 20150703
  17. BISOPROLOL [Concomitant]
     Active Substance: BISOPROLOL
  18. CARBOCISTEINE [Concomitant]
     Active Substance: CARBOCYSTEINE
  19. GLYCERYL TRINITRATE [Concomitant]
     Active Substance: NITROGLYCERIN

REACTIONS (3)
  - Confusional state [Not Recovered/Not Resolved]
  - Delirium [Not Recovered/Not Resolved]
  - Hallucination, visual [Recovered/Resolved]

NARRATIVE: CASE EVENT DATE: 20150618
